FAERS Safety Report 10494136 (Version 1)
Quarter: 2014Q4

REPORT INFORMATION
  Report Type: Spontaneous
  Country: IT (occurrence: IT)
  Receive Date: 20141003
  Receipt Date: 20141003
  Transmission Date: 20150528
  Serious: Yes (Hospitalization)
  Sender: FDA-Public Use
  Company Number: IT-ASTRAZENECA-2014SE72540

PATIENT
  Age: 23954 Day
  Sex: Female

DRUGS (16)
  1. BISOPROLOL [Concomitant]
     Active Substance: BISOPROLOL
  2. COUMADIN (WARFARIN) [Concomitant]
  3. ESKIM (ETHYL ESTERS OF POLYUNSATURATED FATTY ACIDS) [Concomitant]
  4. HUMALOG [Concomitant]
     Active Substance: INSULIN LISPRO
  5. PLAVIX (TICAGRELOR) [Concomitant]
  6. SYMBICORT [Suspect]
     Active Substance: BUDESONIDE\FORMOTEROL FUMARATE DIHYDRATE
     Indication: ASTHMA
     Dosage: 160/4.5 UG, 2 DF, DAILY
     Dates: start: 20140319, end: 20140622
  7. CRESTOR [Concomitant]
     Active Substance: ROSUVASTATIN CALCIUM
  8. LANTUS [Concomitant]
     Active Substance: INSULIN GLARGINE
  9. ALLOPURINOL. [Concomitant]
     Active Substance: ALLOPURINOL
  10. DELTACORTENE ( PREDNISONE) [Concomitant]
  11. SINGULAIR (MONTELUKAST) [Concomitant]
  12. FUROSEMIDE. [Concomitant]
     Active Substance: FUROSEMIDE
  13. PANTORC (PANTOPRAZOL) [Concomitant]
  14. CORDARONE (AMIODARONE ) [Concomitant]
  15. LUVION (CANRENONE) [Concomitant]
     Active Substance: CANRENONE
  16. KANRENOL (CANRENOATE) [Concomitant]

REACTIONS (5)
  - Dysphonia [Recovered/Resolved]
  - Activities of daily living impaired [Unknown]
  - Dyspnoea [Recovered/Resolved]
  - Chest discomfort [Recovered/Resolved]
  - Dyspnoea exertional [Unknown]

NARRATIVE: CASE EVENT DATE: 20140407
